FAERS Safety Report 9533129 (Version 1)
Quarter: 2013Q2

REPORT INFORMATION
  Report Type: Spontaneous
  Country: US (occurrence: None)
  Receive Date: 20130418
  Receipt Date: 20130418
  Transmission Date: 20140414
  Serious: Yes (Other)
  Sender: FDA-Public Use
  Company Number: 2012PROUSA02411

PATIENT
  Age: 64 Year
  Sex: Male
  Weight: 108.8 kg

DRUGS (7)
  1. PROVENGE [Suspect]
     Indication: PROSTATE CANCER METASTATIC
     Route: 042
     Dates: start: 20121029, end: 20121029
  2. LISINOPRIL (LISINOPRIL) [Concomitant]
  3. ZOLPIDEM TARTRATE (ZOLPIDEM TARTRATE) [Concomitant]
  4. HYDROCODONE/ACETAMINOPHEN (HYDROCODONE BITARTRATE, PARACETAMOL) [Concomitant]
  5. CYCLOBENZAPRINE (CYCLOBENZAPRINE HYDROCHLORIDE) [Concomitant]
  6. BICALUTAMIDE (BICALUTAMIDE) [Concomitant]
  7. IBUPROFEN (IBUPROFEN) [Concomitant]

REACTIONS (1)
  - Muscle strain [None]
